FAERS Safety Report 9367646 (Version 3)
Quarter: 2014Q1

REPORT INFORMATION
  Report Type: Spontaneous
  Country: US (occurrence: US)
  Receive Date: 20130625
  Receipt Date: 20140122
  Transmission Date: 20141002
  Serious: Yes (Hospitalization, Other)
  Sender: FDA-Public Use
  Company Number: US-B.I. PHARMACEUTICALS,INC./RIDGEFIELD-2013-BI-17934BP

PATIENT
  Sex: Female
  Weight: 76.2 kg

DRUGS (6)
  1. PRADAXA [Suspect]
     Dates: start: 20120127, end: 201205
  2. ENOXAPARIN [Concomitant]
  3. CARAFATE [Concomitant]
  4. PHENYTOIN [Concomitant]
  5. PRAMIPEXOLE [Concomitant]
  6. PROMETHAZINE [Concomitant]

REACTIONS (7)
  - Renal haemorrhage [Unknown]
  - Gastrointestinal haemorrhage [Unknown]
  - Epistaxis [Unknown]
  - Vaginal haemorrhage [Unknown]
  - Cerebrovascular accident [Unknown]
  - Respiratory failure [Unknown]
  - Myocardial infarction [Unknown]
